FAERS Safety Report 7545734-5 (Version None)
Quarter: 2011Q2

REPORT INFORMATION
  Report Type: 
  Country: None (occurrence: None)
  Receive Date: 20110524
  Receipt Date: 20110211
  Transmission Date: 20111010
  Serious: No
  Sender: FDA-Public Use
  Company Number: 027442

PATIENT
  Sex: Female
  Weight: 140.6 kg

DRUGS (24)
  1. FUROSEMIDE [Concomitant]
  2. PENTASA [Concomitant]
  3. DURAGESIC-100 [Concomitant]
  4. EPIPEN /00003901/ [Concomitant]
  5. LOVASTATIN [Concomitant]
  6. ADDERALL 10 [Concomitant]
  7. CIMZIA [Suspect]
     Indication: CROHN'S DISEASE
     Dosage: (2 SHOTS SUBCUTANEOUS) ; (2 SHOTS SUBCUTANEOUS)
     Route: 058
     Dates: start: 20110126
  8. CIMZIA [Suspect]
     Indication: CROHN'S DISEASE
     Dosage: (2 SHOTS SUBCUTANEOUS) ; (2 SHOTS SUBCUTANEOUS)
     Route: 058
     Dates: start: 20100915, end: 20110112
  9. TRAMADOL HCL [Concomitant]
  10. LISINOPRIL [Concomitant]
  11. METFORMIN HCL [Concomitant]
  12. RISPERIDONE [Concomitant]
  13. PROMETHAZINE [Concomitant]
  14. ALBUTEROL [Concomitant]
  15. CYPROHEPTADINE HCL [Concomitant]
  16. METOPROLOL TARTRATE [Concomitant]
  17. ZOLOFT [Concomitant]
  18. SPIRONOLACTONE [Concomitant]
  19. POTASSIUM [Concomitant]
  20. ATIVAN [Concomitant]
  21. FLEXERIL [Concomitant]
  22. VICODIN [Concomitant]
  23. PREMARIN [Concomitant]
  24. M.V.I. [Concomitant]

REACTIONS (2)
  - DRUG EFFECT DECREASED [None]
  - FATIGUE [None]
